FAERS Safety Report 8556251-8 (Version None)
Quarter: 2012Q2

REPORT INFORMATION
  Report Type: 
  Country: None (occurrence: None)
  Receive Date: 20120418
  Receipt Date: 20100302
  Transmission Date: 20120825
  Serious: Yes (Other)
  Sender: FDA-Public Use
  Company Number: PHEH2009US02479

PATIENT
  Age: 30 Year
  Sex: Female

DRUGS (18)
  1. TRIAMCINOLONE [Concomitant]
  2. ELIDEL [Suspect]
     Indication: ECZEMA
     Dosage: TOPICAL
     Route: 061
     Dates: start: 20010201
  3. PSORALENS FOR SYSTEMICUSE (NO INGREDIENTS/SUBSTANCES) [Concomitant]
  4. BACITRACIN (BRACITRACIN) [Concomitant]
  5. PHENERGAN ^AVENTIS PHARMA^(PROMETHAZINE HYDROCHLORIDE) [Concomitant]
  6. OXSORALEN (METHOXSALEN) [Concomitant]
  7. PUVA (NO INGREDIENTS/SUBSTANCES) [Concomitant]
  8. TYLRNOL (PARACETAMOL) [Concomitant]
  9. BACTRIM [Concomitant]
  10. TARGRETIN [Concomitant]
  11. SYNTHROID [Concomitant]
  12. HYDROQUINONE (HYDROQUINONE) [Concomitant]
  13. DESONIDE [Concomitant]
  14. NITROGREN MUSTARD (CHLORMETHINE HYDROCHLORIDE) [Concomitant]
  15. AVEENO ANTI-ITCH /USA/ *CALAMINE, CAMPHOR, PRAMOCAINE HYDROCHLORIDE) [Concomitant]
  16. PLAQUENIL (HYROXYCHLOROQUINE SULFATE) [Concomitant]
  17. MAGNESIUM (MAGNESIUM) [Concomitant]
  18. TRICOR [Concomitant]

REACTIONS (14)
  - T-CELL LYMPHOMA [None]
  - MYCOSIS FUNGOIDES [None]
  - HYPOVITAMINOSIS [None]
  - CONTRACEPTION [None]
  - DRY EYE [None]
  - PRURITUS [None]
  - NAUSEA [None]
  - SUBCUTANEOUS ABSCESS [None]
  - INJURY [None]
  - ALOPECIA [None]
  - LICHENOID KERATOSIS [None]
  - ABSCESS DRAINAGE [None]
  - CUTANEOUS LUPUS ERYTHEMATOSUS [None]
  - BACTERIAL DISEASE CARRIER [None]
